FAERS Safety Report 10163337 (Version 4)
Quarter: 2014Q4

REPORT INFORMATION
  Report Type: Report from Study
  Country: US (occurrence: US)
  Receive Date: 20140509
  Receipt Date: 20141007
  Transmission Date: 20150528
  Serious: Yes (Hospitalization)
  Sender: FDA-Public Use
  Company Number: US-BRISTOL-MYERS SQUIBB COMPANY-20696670

PATIENT
  Age: 50 Year
  Sex: Male

DRUGS (26)
  1. OXYCONTIN [Concomitant]
     Active Substance: OXYCODONE HYDROCHLORIDE
     Dates: start: 20130916
  2. MULTIVITAMIN [Concomitant]
     Active Substance: VITAMINS
     Dosage: 1DF: 1TABLET
     Dates: start: 20131031
  3. REGLAN [Concomitant]
     Active Substance: METOCLOPRAMIDE HYDROCHLORIDE
     Dates: start: 20140131
  4. KEFLEX [Concomitant]
     Active Substance: CEPHALEXIN
     Dates: start: 20140218
  5. MIRALAX [Concomitant]
     Active Substance: POLYETHYLENE GLYCOL 3350
     Dates: start: 20140218
  6. GABAPENTIN. [Concomitant]
     Active Substance: GABAPENTIN
     Dosage: CAPSULE
     Route: 048
  7. ONDANSETRON [Concomitant]
     Active Substance: ONDANSETRON
     Indication: VOMITING
     Dosage: 4 MG, 2 ML, IV PUSH, Q6H
     Route: 048
  8. IPILIMUMAB [Suspect]
     Active Substance: IPILIMUMAB
     Indication: MALIGNANT MELANOMA
     Dosage: (26-DEC-2013 TO 26-DEC-2013) 1041 MG ,(05-FEB-2014 TO 05-FEB-2014)932.7MG?1059 UNIT NOS
     Route: 042
     Dates: start: 20131204, end: 20140205
  9. VALIUM [Concomitant]
     Active Substance: DIAZEPAM
     Dates: start: 20130929
  10. NEURONTIN [Concomitant]
     Active Substance: GABAPENTIN
     Dates: start: 20140220
  11. MICONAZOLE [Concomitant]
     Active Substance: MICONAZOLE
     Dates: start: 20140319
  12. ONDANSETRON [Concomitant]
     Active Substance: ONDANSETRON
     Indication: NAUSEA
     Dosage: 4 MG, 2 ML, IV PUSH, Q6H
     Route: 048
  13. VANCOMYCIN [Concomitant]
     Active Substance: VANCOMYCIN
     Dates: start: 20140319
  14. OXYCODONE [Concomitant]
     Active Substance: OXYCODONE
     Dates: start: 20140131
  15. VEMURAFENIB [Suspect]
     Active Substance: VEMURAFENIB
     Indication: MALIGNANT MELANOMA
     Dosage: (05-MAR-2014 TO 21-APR-2014)960MG ?1920 MG
     Route: 048
     Dates: start: 20131017, end: 20140421
  16. IBUPROFEN. [Concomitant]
     Active Substance: IBUPROFEN
     Dates: start: 20131031
  17. COLACE [Concomitant]
     Active Substance: DOCUSATE SODIUM
     Dates: start: 20131218
  18. FENTANYL. [Concomitant]
     Active Substance: FENTANYL
     Dosage: 31JAN14-ONG:75MCG/HR?100 MCG/HR TRANSDERMAL FILM, EXTENDED RELEASE: 1 PATCH, TRANSDERMAL, Q72HR
     Dates: start: 20131226
  19. AUGMENTIN [Concomitant]
     Active Substance: AMOXICILLIN\CLAVULANATE POTASSIUM
     Dates: start: 201307
  20. MINOCYCLINE [Concomitant]
     Active Substance: MINOCYCLINE\MINOCYCLINE HYDROCHLORIDE
     Dates: start: 201307
  21. LOVENOX [Concomitant]
     Active Substance: ENOXAPARIN SODIUM
     Dates: start: 20140319
  22. NICOTINE. [Concomitant]
     Active Substance: NICOTINE
     Dosage: EXTENDED RELEASE, TRANSDERMAL FILM
     Route: 062
  23. PNEUMOCOCCAL VACCINE [Concomitant]
     Active Substance: PNEUMOCOCCAL VACCINE POLYVALENT
     Route: 030
  24. LACTULOSE. [Concomitant]
     Active Substance: LACTULOSE
     Dosage: 18DEC13:ONG
     Dates: start: 20131017
  25. ZOFRAN [Concomitant]
     Active Substance: ONDANSETRON HYDROCHLORIDE
     Dates: start: 20140131
  26. ACETAMINOPHEN. [Concomitant]
     Active Substance: ACETAMINOPHEN
     Dosage: SUPPOSITORY?2TABLETS:ORAL:Q6H
     Route: 054

REACTIONS (2)
  - Blood creatinine increased [Not Recovered/Not Resolved]
  - Haematuria [Unknown]

NARRATIVE: CASE EVENT DATE: 20140430
